FAERS Safety Report 9553055 (Version 2)
Quarter: 2013Q3

REPORT INFORMATION
  Report Type: Report from Study
  Country: LB (occurrence: LB)
  Receive Date: 20130925
  Receipt Date: 20130925
  Transmission Date: 20140515
  Serious: Yes (Hospitalization, Other)
  Sender: FDA-Public Use
  Company Number: LB-SANOFI-AVENTIS-2013SA091744

PATIENT
  Age: 64 Year
  Sex: Female

DRUGS (14)
  1. LANTUS SOLOSTAR [Suspect]
     Indication: DIABETES MELLITUS
     Dosage: DOSE:20 UNIT(S)
     Route: 058
     Dates: start: 2012
  2. LANTUS SOLOSTAR [Suspect]
     Indication: DIABETES MELLITUS
     Dosage: DOSE:42 UNIT(S)
     Route: 058
     Dates: start: 201309
  3. TRENTAL [Concomitant]
     Route: 048
  4. VESSEL DUE [Concomitant]
     Route: 048
  5. LASIX [Concomitant]
     Route: 048
  6. AMLOR [Concomitant]
     Route: 048
  7. CONCOR [Concomitant]
     Route: 048
  8. CORDARONE [Concomitant]
     Route: 048
  9. GLUCOPHAGE [Concomitant]
     Indication: DIABETES MELLITUS
     Route: 048
  10. ATENOLOL/CHLORTALIDONE [Concomitant]
     Indication: HYPERTENSION
     Route: 048
  11. SIMVASTATIN [Concomitant]
     Indication: DYSLIPIDAEMIA
     Route: 048
  12. ASPICOT [Concomitant]
     Route: 048
  13. PLAVIX [Concomitant]
     Route: 048
  14. VITAMIN D [Concomitant]
     Route: 048

REACTIONS (7)
  - Musculoskeletal pain [Not Recovered/Not Resolved]
  - Gastric disorder [Not Recovered/Not Resolved]
  - Hypoglycaemia [Recovered/Resolved]
  - Syncope [Recovered/Resolved]
  - Speech disorder [Recovered/Resolved]
  - Vision blurred [Recovered/Resolved]
  - Hyperglycaemia [Not Recovered/Not Resolved]
